FAERS Safety Report 8576186-4 (Version None)
Quarter: 2012Q3

REPORT INFORMATION
  Report Type: 
  Country: None (occurrence: None)
  Receive Date: 20120807
  Receipt Date: 20120802
  Transmission Date: 20120928
  Serious: Yes (Other)
  Sender: FDA-Public Use
  Company Number: US-B.I. PHARMACEUTICALS,INC./RIDGEFIELD-2012-BP-17453BP

PATIENT
  Sex: Male

DRUGS (5)
  1. FLUTICASONE PROPIONATE [Concomitant]
     Route: 055
     Dates: start: 20080101
  2. CRESTOR [Concomitant]
     Indication: BLOOD CHOLESTEROL INCREASED
     Dates: start: 20110101
  3. SPIRIVA [Suspect]
     Indication: CHRONIC OBSTRUCTIVE PULMONARY DISEASE
     Dosage: 18 MCG
     Route: 055
     Dates: start: 20120301
  4. LISINOPRIL [Concomitant]
     Indication: HYPERTENSION
     Dates: start: 20120201
  5. ALLOPURINOL [Concomitant]
     Indication: NEPHROLITHIASIS
     Dates: start: 20020101

REACTIONS (2)
  - LUNG NEOPLASM MALIGNANT [None]
  - INCORRECT ROUTE OF DRUG ADMINISTRATION [None]
